FAERS Safety Report 13336579 (Version 2)
Quarter: 2018Q4

REPORT INFORMATION
  Report Type: Spontaneous
  Country: TH (occurrence: TH)
  Receive Date: 20170315
  Receipt Date: 20181102
  Transmission Date: 20190204
  Serious: Yes (Other)
  Sender: FDA-Public Use
  Company Number: TH-LUPIN PHARMACEUTICALS INC.-2017-00293

PATIENT
  Age: 72 Year
  Sex: Male

DRUGS (17)
  1. AMIKACIN. [Suspect]
     Active Substance: AMIKACIN
     Indication: MYCOBACTERIUM ABSCESSUS INFECTION
     Dosage: INITIALLY AS EMPIRICAL REGIMENS FOR NON-TB TREATMENT
     Route: 042
  2. CLARITHROMYCIN. [Concomitant]
     Active Substance: CLARITHROMYCIN
     Dosage: UNK UNK,UNK,UNKNOWN
     Route: 065
  3. IMIPENEM AND CILASTATIN [Concomitant]
     Active Substance: CILASTATIN SODIUM\IMIPENEM
     Indication: MYCOBACTERIUM ABSCESSUS INFECTION
     Dosage: INITIALLY AS EMPIRICAL REGIMENS FOR NON-TB TREATMENT
     Route: 042
  4. LIPOSOMAL AMPHOTERICIN B [Concomitant]
     Active Substance: AMPHOTERICIN B
     Indication: PENICILLIUM INFECTION
     Dosage: UNK UNK,UNK,
     Route: 065
  5. ITRACONAZOLE. [Concomitant]
     Active Substance: ITRACONAZOLE
     Dosage: UNK UNK,UNK,
     Route: 065
  6. METHYLPREDNISOLONE. [Concomitant]
     Active Substance: METHYLPREDNISOLONE
     Indication: SKIN LESION
     Dosage: 1000 MG,UNK,UNKNOWN
     Route: 065
  7. CIPROFLOXACIN. [Suspect]
     Active Substance: CIPROFLOXACIN
     Dosage: UNK UNK,UNK,UNKNOWN
     Route: 065
  8. AMIKACIN. [Suspect]
     Active Substance: AMIKACIN
     Dosage: {3TIMES/WEEK
     Route: 065
  9. AMIKACIN. [Suspect]
     Active Substance: AMIKACIN
     Dosage: UNK UNK,AS DIRECTED,
     Route: 065
  10. LINEZOLID. [Suspect]
     Active Substance: LINEZOLID
     Indication: MYCOBACTERIUM ABSCESSUS INFECTION
     Dosage: UNK UNK,UNK,UNKNOWN
     Route: 065
  11. METHYLPREDNISOLONE. [Concomitant]
     Active Substance: METHYLPREDNISOLONE
     Dosage: UNK UNK,UNK,UNKNOWN
     Route: 065
  12. ETHAMBUTOL [Concomitant]
     Active Substance: ETHAMBUTOL HYDROCHLORIDE
     Indication: PENICILLIUM INFECTION
     Dosage: UNK UNK,UNK,UNKNOWN
     Route: 065
  13. CLARITHROMYCIN. [Concomitant]
     Active Substance: CLARITHROMYCIN
     Indication: MYCOBACTERIUM ABSCESSUS INFECTION
     Dosage: UNK UNK,UNK,UNKNOWN
     Route: 065
  14. RITUXIMAB. [Concomitant]
     Active Substance: RITUXIMAB
     Indication: SKIN LESION
     Dosage: 375 MG/M2,AS DIRECTED,
     Route: 065
  15. CIPROFLOXACIN. [Suspect]
     Active Substance: CIPROFLOXACIN
     Indication: MYCOBACTERIUM ABSCESSUS INFECTION
     Dosage: UNK UNK,UNK,UNKNOWN
     Route: 065
  16. CLARITHROMYCIN. [Concomitant]
     Active Substance: CLARITHROMYCIN
     Dosage: UNK UNK,UNK,UNKNOWN
     Route: 065
  17. ITRACONAZOLE. [Concomitant]
     Active Substance: ITRACONAZOLE
     Indication: PENICILLIUM INFECTION
     Dosage: UNK UNK,UNK,
     Route: 048

REACTIONS (2)
  - Electrocardiogram QT prolonged [Unknown]
  - Thrombocytopenia [Unknown]
